FAERS Safety Report 8492461-6 (Version None)
Quarter: 2012Q3

REPORT INFORMATION
  Report Type: 
  Country: None (occurrence: None)
  Receive Date: 20120706
  Receipt Date: 20120621
  Transmission Date: 20120928
  Serious: Yes (Death, Other)
  Sender: FDA-Public Use
  Company Number: JP-ROCHE-1082194

PATIENT
  Sex: Male
  Weight: 57 kg

DRUGS (17)
  1. AVASTIN [Suspect]
     Dates: start: 20120201, end: 20120201
  2. CARBOPLATIN [Suspect]
     Dates: start: 20120315, end: 20120315
  3. GRANISETRON [Concomitant]
     Route: 041
     Dates: start: 20111228, end: 20120412
  4. DEXAMETHASONE SODIUM PHOSPHATE [Concomitant]
     Route: 042
     Dates: start: 20111228, end: 20120412
  5. CARBOPLATIN [Suspect]
     Indication: LUNG ADENOCARCINOMA METASTATIC
     Route: 041
     Dates: start: 20120201, end: 20120201
  6. LOXOPROFEN [Concomitant]
     Route: 048
     Dates: end: 20120508
  7. SENNOSIDE [Concomitant]
     Route: 048
     Dates: end: 20120416
  8. AVASTIN [Suspect]
     Indication: LUNG ADENOCARCINOMA METASTATIC
     Route: 041
     Dates: start: 20111228, end: 20111228
  9. AVASTIN [Suspect]
     Dates: start: 20120315, end: 20120315
  10. PACLITAXEL [Suspect]
     Indication: LUNG ADENOCARCINOMA METASTATIC
     Route: 041
     Dates: start: 20120315, end: 20120412
  11. FAMOTIDINE [Concomitant]
     Route: 042
     Dates: start: 20111228, end: 20120412
  12. DICLOFENAC SODIUM [Concomitant]
     Route: 054
     Dates: start: 20111230, end: 20111230
  13. SULBACILLINE [Suspect]
     Indication: INTERSTITIAL LUNG DISEASE
     Route: 042
     Dates: start: 20120502, end: 20120509
  14. VITAMEDIN [Concomitant]
     Route: 042
     Dates: start: 20111228, end: 20120412
  15. REBAMIPIDE [Concomitant]
     Route: 048
     Dates: end: 20120508
  16. RESTAMIN [Concomitant]
     Route: 048
     Dates: start: 20111228, end: 20120412
  17. ZOFRAN [Concomitant]
     Route: 048
     Dates: start: 20111228, end: 20120412

REACTIONS (9)
  - NASOPHARYNGITIS [None]
  - INTERSTITIAL LUNG DISEASE [None]
  - INSOMNIA [None]
  - RASH [None]
  - NEUTROPHIL COUNT DECREASED [None]
  - PNEUMONIA [None]
  - COLONIC POLYP [None]
  - HYPERTENSION [None]
  - ECZEMA [None]
